FAERS Safety Report 6779615-1 (Version None)
Quarter: 2010Q2

REPORT INFORMATION
  Report Type: 
  Country: None (occurrence: None)
  Receive Date: 20100618
  Receipt Date: 20100614
  Transmission Date: 20101027
  Serious: Yes (Other)
  Sender: FDA-Public Use
  Company Number: B0635662A

PATIENT
  Sex: Male

DRUGS (3)
  1. ROPINIROLE [Suspect]
     Indication: PARKINSON'S DISEASE
     Route: 065
     Dates: start: 20020122, end: 20061115
  2. SINEMET [Concomitant]
     Indication: PARKINSON'S DISEASE
     Dates: start: 20040809
  3. CO-CARELDOPA [Concomitant]
     Indication: PARKINSON'S DISEASE
     Dates: start: 20040908

REACTIONS (11)
  - ABNORMAL BEHAVIOUR [None]
  - DEPRESSION [None]
  - EXCESSIVE SEXUAL FANTASIES [None]
  - EXHIBITIONISM [None]
  - GAMBLING [None]
  - NAUSEA [None]
  - OBSESSIVE-COMPULSIVE DISORDER [None]
  - PATHOLOGICAL GAMBLING [None]
  - PERSONALITY CHANGE [None]
  - SOMNOLENCE [None]
  - SUICIDAL IDEATION [None]
